FAERS Safety Report 11253211 (Version 1)
Quarter: 2015Q3

REPORT INFORMATION
  Report Type: Spontaneous
  Country: BR (occurrence: BR)
  Receive Date: 20150709
  Receipt Date: 20150709
  Transmission Date: 20151125
  Serious: Yes (Hospitalization, Other)
  Sender: FDA-Public Use
  Company Number: BR-AMGEN-BRASP2015011002

PATIENT
  Age: 67 Year
  Sex: Female
  Weight: 50 kg

DRUGS (9)
  1. ATENOLOL. [Concomitant]
     Active Substance: ATENOLOL
     Dosage: 4 TABLETS (25MG), DAILY
  2. HYDROCHLOROTHIAZIDE. [Concomitant]
     Active Substance: HYDROCHLOROTHIAZIDE
     Indication: HYPERTENSION
     Dosage: ONE TABLET (50MG), DAILY
  3. ETNA                               /08553901/ [Concomitant]
     Indication: RHEUMATOID ARTHRITIS
     Dosage: 2 TABLETS, PER DAY IF FEELING PAIN
  4. MIONEVRIX                          /01545401/ [Concomitant]
     Indication: RHEUMATOID ARTHRITIS
     Dosage: ONE TABLET (250MG), AS NEEDED
  5. LOSARTAN. [Concomitant]
     Active Substance: LOSARTAN
     Indication: HYPERTENSION
     Dosage: 2 TABLETS (50MG), DAILY
  6. MIONEVRIX                          /01545401/ [Concomitant]
     Indication: PAIN
     Dosage: UNK
  7. ETNA                               /08553901/ [Concomitant]
     Indication: PAIN
     Dosage: UNK
  8. CALCIFEROL                         /00107901/ [Concomitant]
     Dosage: UNK
  9. ENBREL [Suspect]
     Active Substance: ETANERCEPT
     Indication: RHEUMATOID ARTHRITIS
     Dosage: 50 MG, WEEKLY
     Route: 058
     Dates: start: 20150120

REACTIONS (8)
  - Pruritus [Recovered/Resolved]
  - Injection site erythema [Not Recovered/Not Resolved]
  - Blood pressure fluctuation [Not Recovered/Not Resolved]
  - Drug ineffective [Not Recovered/Not Resolved]
  - Dengue fever [Not Recovered/Not Resolved]
  - Injection site discolouration [Unknown]
  - Pain [Not Recovered/Not Resolved]
  - Injection site swelling [Not Recovered/Not Resolved]

NARRATIVE: CASE EVENT DATE: 2015
